FAERS Safety Report 16033582 (Version 1)
Quarter: 2019Q2

REPORT INFORMATION
  Report Type: Spontaneous
  Country: US (occurrence: US)
  Receive Date: 20190305
  Receipt Date: 20190305
  Transmission Date: 20190711
  Serious: No
  Sender: FDA-Public Use
  Company Number: None

PATIENT
  Age: 33 Year
  Sex: Female
  Weight: 103.05 kg

DRUGS (1)
  1. PYRANTEL PAMOATE. [Suspect]
     Active Substance: PYRANTEL PAMOATE
     Indication: ENTEROBIASIS
     Dosage: ?          QUANTITY:1 DROP(S);?
     Route: 048
     Dates: start: 20190305, end: 20190305

REACTIONS (3)
  - Headache [None]
  - Confusional state [None]
  - Nausea [None]

NARRATIVE: CASE EVENT DATE: 20190305
